FAERS Safety Report 13527400 (Version 1)
Quarter: 2017Q2

REPORT INFORMATION
  Report Type: Spontaneous
  Country: US (occurrence: US)
  Receive Date: 20170509
  Receipt Date: 20170509
  Transmission Date: 20170830
  Serious: Yes (Hospitalization)
  Sender: FDA-Public Use
  Company Number: US-VIFOR (INTERNATIONAL) INC.-VIT-2017-04984

PATIENT
  Age: 53 Year
  Sex: Male

DRUGS (9)
  1. VELTASSA [Suspect]
     Active Substance: PATIROMER
     Indication: HYPERKALAEMIA
     Route: 048
     Dates: start: 201701, end: 20170403
  2. CALCITRIOL. [Concomitant]
     Active Substance: CALCITRIOL
  3. ERGOCALCIFEROL. [Concomitant]
     Active Substance: ERGOCALCIFEROL
  4. CLONIDINE. [Concomitant]
     Active Substance: CLONIDINE
  5. RENVELA [Concomitant]
     Active Substance: SEVELAMER CARBONATE
  6. DARBEPOETIN ALFA [Concomitant]
     Active Substance: DARBEPOETIN ALFA
  7. VITAMINS NOS [Concomitant]
     Active Substance: VITAMINS
  8. ATORVASTATIN [Concomitant]
     Active Substance: ATORVASTATIN
  9. IRON [Concomitant]
     Active Substance: IRON
     Route: 042

REACTIONS (4)
  - Large intestine perforation [Recovered/Resolved]
  - Colostomy [Unknown]
  - Constipation [Recovered/Resolved]
  - Colon operation [Recovered/Resolved]

NARRATIVE: CASE EVENT DATE: 201703
